FAERS Safety Report 5727601-2 (Version None)
Quarter: 2008Q2

REPORT INFORMATION
  Report Type: 
  Country: None (occurrence: None)
  Receive Date: 20080505
  Receipt Date: 20080423
  Transmission Date: 20081010
  Serious: Yes (Other)
  Sender: FDA-Public Use
  Company Number: US-WYE-H03765408

PATIENT
  Sex: Female

DRUGS (4)
  1. EFFEXOR XR [Suspect]
     Indication: HOT FLUSH
     Route: 048
  2. EFFEXOR XR [Suspect]
     Indication: DEPRESSION
     Route: 048
     Dates: end: 20080416
  3. PROZAC [Suspect]
     Indication: DEPRESSION
  4. PRISTIQ [Suspect]
     Indication: DEPRESSION
     Route: 048
     Dates: start: 20080417

REACTIONS (4)
  - DRUG INEFFECTIVE [None]
  - FEELING OF DESPAIR [None]
  - LETHARGY [None]
  - SUICIDAL IDEATION [None]
